FAERS Safety Report 5402069-4 (Version None)
Quarter: 2007Q3

REPORT INFORMATION
  Report Type: 
  Country: None (occurrence: None)
  Receive Date: 20070727
  Receipt Date: 20060621
  Transmission Date: 20080115
  Serious: Yes (Death, Hospitalization, Other)
  Sender: FDA-Public Use
  Company Number: THYM-10533

PATIENT
  Age: 45 Year
  Sex: Female
  Weight: 70.7611 kg

DRUGS (8)
  1. THYMOGLOBULIN [Suspect]
     Indication: IMMUNOSUPPRESSION
     Dosage: 100 MG QD IV
     Route: 042
     Dates: start: 20050505, end: 20050506
  2. THYMOGLOBULIN [Suspect]
     Indication: PANCREAS TRANSPLANT
     Dosage: 100 MG QD IV
     Route: 042
     Dates: start: 20050505, end: 20050506
  3. THYMOGLOBULIN [Suspect]
     Indication: IMMUNOSUPPRESSION
     Dosage: 125 MG QD IV
     Route: 042
     Dates: start: 20050508, end: 20050508
  4. THYMOGLOBULIN [Suspect]
     Indication: PANCREAS TRANSPLANT
     Dosage: 125 MG QD IV
     Route: 042
     Dates: start: 20050508, end: 20050508
  5. STANDARD THERAPY GROUP: TACROLIMUS [Suspect]
     Indication: RENAL TRANSPLANT
     Dates: start: 20040601
  6. MYCOPHENOLATE MOFETIL [Suspect]
     Indication: RENAL TRANSPLANT
     Dates: start: 20040601
  7. PREDNISONE [Suspect]
     Indication: RENAL TRANSPLANT
     Dates: start: 20040601
  8. METHYLPREDNISOLONE [Suspect]
     Indication: RENAL TRANSPLANT
     Dates: start: 20040601

REACTIONS (15)
  - ACUTE RESPIRATORY DISTRESS SYNDROME [None]
  - CALCINOSIS [None]
  - COMPLICATIONS OF TRANSPLANTED PANCREAS [None]
  - ENTEROCOCCAL INFECTION [None]
  - FLUID OVERLOAD [None]
  - FUNGAL RASH [None]
  - MYOCARDIAL INFARCTION [None]
  - PANCREAS TRANSPLANT [None]
  - PANCREATIC NECROSIS [None]
  - PANCREATITIS ACUTE [None]
  - PULMONARY OEDEMA [None]
  - RESPIRATORY FAILURE [None]
  - STAPHYLOCOCCAL INFECTION [None]
  - TRICUSPID VALVE INCOMPETENCE [None]
  - TYPE 1 DIABETES MELLITUS [None]
